FAERS Safety Report 25703903 (Version 2)
Quarter: 2025Q3

REPORT INFORMATION
  Report Type: Report from Study
  Country: US (occurrence: US)
  Receive Date: 20250820
  Receipt Date: 20250909
  Transmission Date: 20251020
  Serious: No
  Sender: BIOGEN
  Company Number: US-BIOGEN-2025BI01320818

PATIENT
  Sex: Female

DRUGS (2)
  1. ZURZUVAE [Suspect]
     Active Substance: ZURANOLONE
     Indication: Perinatal depression
     Dosage: 50 MG NIGHTLY IN THE EVENING WITH FAT CONTAINING FOOD FOR 14 DAYS
     Route: 050
  2. ZURZUVAE [Suspect]
     Active Substance: ZURANOLONE
     Route: 050

REACTIONS (4)
  - Feeling abnormal [Unknown]
  - Dysstasia [Unknown]
  - Dizziness [Unknown]
  - Somnolence [Unknown]
